FAERS Safety Report 17243112 (Version 2)
Quarter: 2020Q1

REPORT INFORMATION
  Report Type: Spontaneous
  Country: US (occurrence: US)
  Receive Date: 20200107
  Receipt Date: 20200114
  Transmission Date: 20200409
  Serious: Yes (Other)
  Sender: FDA-Public Use
  Company Number: US-PFIZER INC-2020001360

PATIENT
  Age: 34 Year
  Sex: Male

DRUGS (6)
  1. BEVACIZUMAB. [Suspect]
     Active Substance: BEVACIZUMAB
     Dosage: 15 MG/KG, UNK  (ONE ADDITIONAL DOSE)
  2. BEVACIZUMAB. [Suspect]
     Active Substance: BEVACIZUMAB
     Indication: ASTROCYTOMA
     Dosage: 10 MG/KG, CYCLIC (EVERY 2 WEEKS)
  3. IFOSFAMIDE. [Suspect]
     Active Substance: IFOSFAMIDE
     Indication: SARCOMA
     Dosage: 3750 MG/M2, CYCLIC (DAYS 1-2 EACH 21-DAY CYCLE)
  4. BEVACIZUMAB. [Suspect]
     Active Substance: BEVACIZUMAB
     Indication: VASOGENIC CEREBRAL OEDEMA
     Dosage: 10 MG/KG, CYCLIC (EVERY 2 WEEKS)
  5. DOXORUBICIN HCL [Suspect]
     Active Substance: DOXORUBICIN HYDROCHLORIDE
     Indication: SARCOMA
     Dosage: 30 MG/M2, CYCLIC (DAYS 1-2 EACH 21-DAY CYCLE)
  6. LEVETIRACETAM. [Concomitant]
     Active Substance: LEVETIRACETAM
     Indication: SEIZURE PROPHYLAXIS
     Dosage: UNK
     Dates: start: 201207

REACTIONS (3)
  - Febrile neutropenia [Unknown]
  - Drug intolerance [Unknown]
  - Fatigue [Unknown]
